FAERS Safety Report 5335208-4 (Version None)
Quarter: 2007Q2

REPORT INFORMATION
  Report Type: 
  Country: None (occurrence: None)
  Receive Date: 20070525
  Receipt Date: 20070521
  Transmission Date: 20071010
  Serious: Yes (Life-Threatening)
  Sender: FDA-Public Use
  Company Number: US-GENENTECH-239629

PATIENT
  Sex: Male
  Weight: 130 kg

DRUGS (3)
  1. BLINDED NO STUDY DRUG ADMINISTERED [Suspect]
     Indication: ASTHMA
     Dosage: UNK, Q4W
     Route: 042
     Dates: start: 20061213
  2. BLINDED OMALIZUMAB [Suspect]
     Indication: ASTHMA
     Dosage: UNK, Q4W
     Route: 042
     Dates: start: 20061213
  3. BLINDED PLACEBO [Suspect]
     Indication: ASTHMA
     Dosage: UNK, Q4W
     Route: 042
     Dates: start: 20061213

REACTIONS (6)
  - ANXIETY [None]
  - DYSPHONIA [None]
  - FLUSHING [None]
  - HYPERSENSITIVITY [None]
  - PHARYNGEAL OEDEMA [None]
  - WHEEZING [None]
